FAERS Safety Report 9044627 (Version 1)
Quarter: 2013Q1

REPORT INFORMATION
  Report Type: Spontaneous
  Country: FI (occurrence: FI)
  Receive Date: 20130130
  Receipt Date: 20130130
  Transmission Date: 20140127
  Serious: Yes (Other)
  Sender: FDA-Public Use
  Company Number: FI-ASTRAZENECA-2013SE04931

PATIENT
  Age: 74 Year
  Sex: Female

DRUGS (5)
  1. ARIMIDEX [Suspect]
     Indication: BREAST CANCER
     Route: 048
     Dates: start: 2009
  2. KALCIUM D [Concomitant]
  3. SIMVASTATIN [Concomitant]
  4. RISEDRONAT ACTAVIS [Concomitant]
     Indication: OSTEOPOROSIS
  5. RADIATION THERAPY [Concomitant]

REACTIONS (6)
  - Metastasis [Unknown]
  - Feeling cold [Unknown]
  - Arthralgia [Unknown]
  - Alopecia [Unknown]
  - Dry skin [Unknown]
  - Exfoliative rash [Unknown]
